FAERS Safety Report 4363056-0 (Version None)
Quarter: 2004Q2

REPORT INFORMATION
  Report Type: 
  Country: None (occurrence: None)
  Receive Date: 20040518
  Receipt Date: 20040503
  Transmission Date: 20050107
  Serious: Yes (Other)
  Sender: FDA-Public Use
  Company Number: NL-JNJFOC-20040501544

PATIENT
  Age: 16 Day
  Sex: Female

DRUGS (1)
  1. MICONAZOLE [Suspect]
     Indication: CANDIDIASIS
     Dosage: 0.5 DOSE(S), 4 IN 1 DAY, ORAL
     Route: 048

REACTIONS (4)
  - APNOEA [None]
  - CHOKING [None]
  - HYPOTONIA [None]
  - RESPIRATORY ARREST [None]
